FAERS Safety Report 23204100 (Version 1)
Quarter: 2023Q4

REPORT INFORMATION
  Report Type: Spontaneous
  Country: US (occurrence: None)
  Receive Date: 20231120
  Receipt Date: 20231120
  Transmission Date: 20240109
  Serious: Yes (Hospitalization)
  Sender: FDA-Public Use
  Company Number: None

PATIENT
  Age: 68 Year
  Sex: Male
  Weight: 98.6 kg

DRUGS (1)
  1. TECVAYLI [Suspect]
     Active Substance: TECLISTAMAB-CQYV
     Indication: Plasma cell myeloma
     Dosage: OTHER FREQUENCY : ONCE;?
     Route: 058
     Dates: start: 20231106

REACTIONS (2)
  - Cytokine release syndrome [None]
  - Immune effector cell-associated neurotoxicity syndrome [None]

NARRATIVE: CASE EVENT DATE: 20231115
